FAERS Safety Report 25761254 (Version 1)
Quarter: 2025Q3

REPORT INFORMATION
  Report Type: Spontaneous
  Country: US (occurrence: US)
  Receive Date: 20250904
  Receipt Date: 20250904
  Transmission Date: 20251021
  Serious: No
  Sender: BRAINTREE
  Company Number: US-BRAINTREE LABORATORIES, INC.-2025BTE00362

PATIENT
  Sex: Female
  Weight: 67.12 kg

DRUGS (15)
  1. PEG-3350 AND ELECTROLYTES [Suspect]
     Active Substance: POLYETHYLENE GLYCOL 3350\POTASSIUM CHLORIDE\SODIUM BICARBONATE\SODIUM CHLORIDE\SODIUM SULFATE
  2. DORZOLAMIDE\TIMOLOL [Concomitant]
     Active Substance: DORZOLAMIDE\TIMOLOL
  3. OLMESARTAN [Concomitant]
     Active Substance: OLMESARTAN
  4. METFORMIN [Concomitant]
     Active Substance: METFORMIN HYDROCHLORIDE
  5. LATANOPROST [Concomitant]
     Active Substance: LATANOPROST
  6. LOPERAMIDE [Concomitant]
     Active Substance: LOPERAMIDE
  7. LANTUS [Concomitant]
     Active Substance: INSULIN GLARGINE
     Dosage: 15 UNITED STATES PHARMACOPEIA UNIT, 1X/DAY
  8. VITAMIN C [Concomitant]
     Active Substance: ASCORBIC ACID
  9. ROSUVASTATIN [Concomitant]
     Active Substance: ROSUVASTATIN
  10. CALCIUM BICARBONATE [Concomitant]
     Active Substance: CALCIUM BICARBONATE
  11. VITAMINS NOS [Concomitant]
     Active Substance: VITAMINS
  12. VITAMIN D3 [Concomitant]
     Active Substance: CHOLECALCIFEROL
  13. VITAMIN B6 [Concomitant]
     Active Substance: PYRIDOXINE HYDROCHLORIDE
  14. ASPIRIN [Concomitant]
     Active Substance: ASPIRIN
  15. VITAMIN B12 [Concomitant]
     Active Substance: CYANOCOBALAMIN

REACTIONS (1)
  - Abdominal distension [Recovered/Resolved]
